FAERS Safety Report 6968335-6 (Version None)
Quarter: 2010Q3

REPORT INFORMATION
  Report Type: 
  Country: None (occurrence: None)
  Receive Date: 20100907
  Receipt Date: 20100831
  Transmission Date: 20110219
  Serious: Yes (Death, Life-Threatening)
  Sender: FDA-Public Use
  Company Number: DE-ROCHE-722362

PATIENT
  Sex: Male
  Weight: 76 kg

DRUGS (2)
  1. BEVACIZUMAB [Suspect]
     Indication: COLORECTAL CANCER
     Dosage: LAST DOSE PRIOR TO SAE 17 AUG 2010.
     Route: 033
     Dates: start: 20100817
  2. DORMICUM [Concomitant]
     Indication: SEDATION
     Dates: start: 20100822, end: 20100826

REACTIONS (2)
  - HEPATIC FAILURE [None]
  - PARTIAL SEIZURES [None]
